FAERS Safety Report 8266151-9 (Version None)
Quarter: 2012Q2

REPORT INFORMATION
  Report Type: 
  Country: None (occurrence: None)
  Receive Date: 20120406
  Receipt Date: 20120328
  Transmission Date: 20120825
  Serious: Yes (Hospitalization)
  Sender: FDA-Public Use
  Company Number: PHEH2012US006924

PATIENT
  Sex: Male

DRUGS (1)
  1. EXJADE [Suspect]
     Indication: MYELODYSPLASTIC SYNDROME
     Dosage: 1000 MG DAILY
     Route: 048
     Dates: start: 20060420

REACTIONS (6)
  - BACTERIAL INFECTION [None]
  - DIVERTICULITIS [None]
  - ABDOMINAL PAIN [None]
  - TOXICITY TO VARIOUS AGENTS [None]
  - CHILLS [None]
  - SEPTIC SHOCK [None]
